FAERS Safety Report 23763488 (Version 2)
Quarter: 2024Q2

REPORT INFORMATION
  Report Type: Spontaneous
  Country: AR (occurrence: AR)
  Receive Date: 20240419
  Receipt Date: 20240605
  Transmission Date: 20240716
  Serious: Yes (Death, Other)
  Sender: FDA-Public Use
  Company Number: AR-009507513-2403ARG000838

PATIENT
  Age: 12 Year
  Sex: Male
  Weight: 47 kg

DRUGS (1)
  1. LETERMOVIR [Suspect]
     Active Substance: LETERMOVIR
     Indication: Cytomegalovirus infection reactivation
     Dosage: 10MG/K/D ORAL (1/2 A PILL)
     Route: 048

REACTIONS (3)
  - Cholecystitis acute [Fatal]
  - Lymphoproliferative disorder [Fatal]
  - Off label use [Unknown]
